FAERS Safety Report 6602886-9 (Version None)
Quarter: 2010Q1

REPORT INFORMATION
  Report Type: 
  Country: None (occurrence: None)
  Receive Date: 20100218
  Receipt Date: 20100125
  Transmission Date: 20100710
  Serious: Yes (Other)
  Sender: FDA-Public Use
  Company Number: JPI-P-009598

PATIENT
  Age: 61 Year
  Sex: Female

DRUGS (9)
  1. LUVOX [Suspect]
     Indication: DRUG USE FOR UNKNOWN INDICATION
     Dosage: ORAL
     Route: 048
  2. PRANLUKAST HYDRATE [Concomitant]
  3. KAMISHOUYOUSAN [Concomitant]
  4. CLOTIAZEPAM [Concomitant]
  5. BROMAZEPAM [Concomitant]
  6. ALBUMIN TANNATE [Concomitant]
  7. MEPENZOLATE BROMIDE [Concomitant]
  8. ETIZOLAM [Concomitant]
  9. BUNAZOSIN HYDROCHLORIDE [Concomitant]

REACTIONS (2)
  - MESENTERIC VASCULAR INSUFFICIENCY [None]
  - PHLEBOSCLEROSIS [None]
